FAERS Safety Report 6057325-6 (Version None)
Quarter: 2009Q1

REPORT INFORMATION
  Report Type: 
  Country: None (occurrence: None)
  Receive Date: 20090129
  Receipt Date: 20081117
  Transmission Date: 20090719
  Serious: No
  Sender: FDA-Public Use
  Company Number: A0752102A

PATIENT
  Age: 41 Year
  Sex: Female
  Weight: 79.5 kg

DRUGS (1)
  1. BUPROPION HYDROCHLORIDE [Suspect]
     Dosage: 1TAB SINGLE DOSE
     Route: 048
     Dates: start: 20080929, end: 20081006

REACTIONS (9)
  - BEDRIDDEN [None]
  - DECREASED INTEREST [None]
  - DISABILITY [None]
  - DIZZINESS [None]
  - EATING DISORDER [None]
  - FEELING ABNORMAL [None]
  - MALAISE [None]
  - NAUSEA [None]
  - PAROSMIA [None]
